FAERS Safety Report 10159710 (Version 1)
Quarter: 2014Q2

REPORT INFORMATION
  Report Type: Spontaneous
  Country: BR (occurrence: BR)
  Receive Date: 20140508
  Receipt Date: 20140508
  Transmission Date: 20141212
  Serious: Yes (Other)
  Sender: FDA-Public Use
  Company Number: BR-ASTRAZENECA-2014SE30293

PATIENT
  Sex: Male

DRUGS (4)
  1. BRILINTA [Suspect]
     Route: 048
  2. CONCOR [Concomitant]
     Indication: HYPERTENSION
  3. LIPITOR [Concomitant]
  4. UNKNOWN [Concomitant]
     Indication: CARDIAC DISORDER

REACTIONS (4)
  - Myocardial infarction [Unknown]
  - Flatulence [Unknown]
  - Fatigue [Unknown]
  - Chest discomfort [Unknown]
